FAERS Safety Report 6759428-7 (Version None)
Quarter: 2010Q2

REPORT INFORMATION
  Report Type: 
  Country: None (occurrence: None)
  Receive Date: 20100602
  Receipt Date: 20100520
  Transmission Date: 20101027
  Serious: Yes (Death)
  Sender: FDA-Public Use
  Company Number: 2010AP000970

PATIENT
  Age: 47 Year
  Sex: Female

DRUGS (7)
  1. FLUOXETINE HYDROCHLORIDE [Suspect]
  2. SERTRALINE HCL [Suspect]
  3. TRAZODONE HYDROCHLORIDE [Suspect]
  4. BUPROPION HYDROCHLORIDE [Suspect]
  5. OXYMORPHONE [Suspect]
  6. METHAMFETAMINE [Suspect]
  7. ETHANOL [Suspect]

REACTIONS (9)
  - CHILLS [None]
  - CONTUSION [None]
  - DRUG ABUSE [None]
  - DRUG TOXICITY [None]
  - EXCORIATION [None]
  - HEPATIC CIRRHOSIS [None]
  - LIVIDITY [None]
  - PETECHIAE [None]
  - PULMONARY CONGESTION [None]
